FAERS Safety Report 18150132 (Version 1)
Quarter: 2020Q3

REPORT INFORMATION
  Report Type: Spontaneous
  Country: US (occurrence: US)
  Receive Date: 20200814
  Receipt Date: 20200814
  Transmission Date: 20201103
  Serious: Yes (Hospitalization)
  Sender: FDA-Public Use
  Company Number: US-CADILA HEALTHCARE LIMITED-US-ZYDUS-054374

PATIENT

DRUGS (2)
  1. LIDOCAINE. [Concomitant]
     Active Substance: LIDOCAINE
     Indication: PAIN MANAGEMENT
     Dosage: UNK
  2. BETAMETHASONE. [Suspect]
     Active Substance: BETAMETHASONE
     Indication: PAIN MANAGEMENT
     Dosage: 8 MILLIGRAM
     Route: 065

REACTIONS (1)
  - Familial periodic paralysis [Recovered/Resolved]
